FAERS Safety Report 8026478-2 (Version None)
Quarter: 2012Q1

REPORT INFORMATION
  Report Type: 
  Country: None (occurrence: None)
  Receive Date: 20120105
  Receipt Date: 20111222
  Transmission Date: 20120608
  Serious: Yes (Hospitalization)
  Sender: FDA-Public Use
  Company Number: NL-MYLANLABS-2011S1026310

PATIENT
  Age: 35 Year
  Sex: Female

DRUGS (3)
  1. ENTOCORT EC [Concomitant]
     Indication: PRODUCT USED FOR UNKNOWN INDICATION
     Dosage: 1DD2
     Route: 048
  2. AZATHIOPRINE [Suspect]
     Indication: PRODUCT USED FOR UNKNOWN INDICATION
     Dosage: 1DD2
     Route: 048
     Dates: start: 20111206, end: 20111209
  3. FEMODEEN [Concomitant]
     Indication: PRODUCT USED FOR UNKNOWN INDICATION
     Dosage: 1DD1
     Route: 048

REACTIONS (4)
  - NAUSEA [None]
  - VOMITING [None]
  - PYREXIA [None]
  - HEADACHE [None]
